FAERS Safety Report 6617793-5 (Version None)
Quarter: 2010Q1

REPORT INFORMATION
  Report Type: 
  Country: None (occurrence: None)
  Receive Date: 20100308
  Receipt Date: 20100226
  Transmission Date: 20100710
  Serious: Yes (Other)
  Sender: FDA-Public Use
  Company Number: CA-JNJFOC-20100300622

PATIENT
  Sex: Female
  Weight: 117 kg

DRUGS (9)
  1. REMICADE [Suspect]
     Indication: CROHN'S DISEASE
     Dosage: 100MG/VIALS
     Route: 042
  2. LOSEC [Concomitant]
  3. LANTUS [Concomitant]
  4. HUMALOG [Concomitant]
  5. AERIUS [Concomitant]
  6. UNSPECIFIED CREAMS NOS [Concomitant]
     Indication: RASH
  7. RELPAX [Concomitant]
  8. IMURAN [Concomitant]
  9. TOPAMAX [Concomitant]

REACTIONS (3)
  - INTESTINAL PROLAPSE [None]
  - NERVOUS SYSTEM NEOPLASM [None]
  - RASH PRURITIC [None]
